FAERS Safety Report 24312661 (Version 1)
Quarter: 2024Q3

REPORT INFORMATION
  Report Type: Spontaneous
  Country: US (occurrence: None)
  Receive Date: 20240911
  Receipt Date: 20240911
  Transmission Date: 20241016
  Serious: Yes (Disabling, Other)
  Sender: Public
  Company Number: None

PATIENT
  Age: 29 Year
  Sex: Male
  Weight: 90.45 kg

DRUGS (3)
  1. RINVOQ [Suspect]
     Active Substance: UPADACITINIB
     Indication: Crohn^s disease
     Dosage: OTHER QUANTITY : 1 TABLET(S);?
     Route: 048
     Dates: start: 20230726
  2. SKYRIZI [Concomitant]
     Active Substance: RISANKIZUMAB-RZAA
  3. WELLBUTRIN [Concomitant]

REACTIONS (1)
  - Weight increased [None]
